FAERS Safety Report 10215393 (Version 1)
Quarter: 2014Q2

REPORT INFORMATION
  Report Type: Spontaneous
  Country: US (occurrence: US)
  Receive Date: 20140604
  Receipt Date: 20140604
  Transmission Date: 20141212
  Serious: Yes (Other)
  Sender: FDA-Public Use
  Company Number: US-ROCHE-1409820

PATIENT
  Sex: Female

DRUGS (11)
  1. KLONOPIN [Suspect]
     Indication: ANXIETY
     Route: 048
  2. KLONOPIN [Suspect]
     Route: 048
  3. KLONOPIN [Suspect]
     Route: 048
  4. CLONAZEPAM [Suspect]
     Indication: PRODUCT USED FOR UNKNOWN INDICATION
     Route: 065
  5. DEXAMETHASONE [Suspect]
     Indication: PERIARTHRITIS
     Route: 065
  6. LEXAPRO [Concomitant]
     Indication: ANXIETY
     Route: 065
  7. SYNTHROID [Concomitant]
     Indication: HYPOTHYROIDISM
     Route: 065
  8. HYOSCYAMINE [Concomitant]
     Indication: IRRITABLE BOWEL SYNDROME
     Route: 065
  9. CITRACAL + D [Concomitant]
     Indication: OSTEOPOROSIS
     Route: 065
  10. VITAMIN D3 [Concomitant]
     Route: 065
  11. IBUPROFEN [Concomitant]
     Indication: PAIN

REACTIONS (16)
  - CREST syndrome [Not Recovered/Not Resolved]
  - Stress [Unknown]
  - Drug dependence [Unknown]
  - Cardiac disorder [Unknown]
  - Anxiety [Not Recovered/Not Resolved]
  - Periarthritis [Unknown]
  - Balance disorder [Unknown]
  - Hyporeflexia [Unknown]
  - Tremor [Unknown]
  - Irritability [Unknown]
  - Withdrawal syndrome [Unknown]
  - Hepatic enzyme increased [Unknown]
  - Pain [Unknown]
  - Renal function test abnormal [Unknown]
  - Drug hypersensitivity [Not Recovered/Not Resolved]
  - Drug ineffective [Unknown]
